FAERS Safety Report 4953745-9 (Version None)
Quarter: 2006Q1

REPORT INFORMATION
  Report Type: 
  Country: None (occurrence: None)
  Receive Date: 20060323
  Receipt Date: 20060323
  Transmission Date: 20060701
  Serious: Yes (Hospitalization)
  Sender: FDA-Public Use
  Company Number: None

PATIENT
  Age: 72 Year
  Sex: Male
  Weight: 97.5234 kg

DRUGS (10)
  1. NORTRIPTYLINE HCL [Suspect]
     Indication: NEUROPATHY
     Dosage: 50 MG   BID   PO
     Route: 048
     Dates: start: 20060309, end: 20060315
  2. NORTRIPTYLINE HCL [Suspect]
     Indication: SCIATICA
     Dosage: 50 MG   BID   PO
     Route: 048
     Dates: start: 20060309, end: 20060315
  3. METFORMIN HYDROCHLORIDE [Concomitant]
  4. SILDENAFIL CITRATE [Concomitant]
  5. PAROXETINE HCL [Concomitant]
  6. CYANOCOBALAMIN [Concomitant]
  7. HYDROCODONE BITARTRATE + ACETAMINOPHEN [Concomitant]
  8. SIMVASTATIN [Concomitant]
  9. ASPIRIN [Concomitant]
  10. DICLOPFENAC [Concomitant]

REACTIONS (8)
  - ASTHENIA [None]
  - CONFUSIONAL STATE [None]
  - DIZZINESS POSTURAL [None]
  - FALL [None]
  - FEELING ABNORMAL [None]
  - FLUID INTAKE REDUCED [None]
  - HYPERHIDROSIS [None]
  - ORTHOSTATIC HYPOTENSION [None]
